FAERS Safety Report 24203492 (Version 2)
Quarter: 2024Q3

REPORT INFORMATION
  Report Type: Spontaneous
  Country: PT (occurrence: PT)
  Receive Date: 20240813
  Receipt Date: 20240826
  Transmission Date: 20241017
  Serious: Yes (Other)
  Sender: GILEAD
  Company Number: None

PATIENT
  Age: 72 Year
  Sex: Male

DRUGS (7)
  1. VEKLURY [Suspect]
     Active Substance: REMDESIVIR
     Indication: COVID-19
     Dosage: 200 MG LOADING, FOLLOWED BY 100 MG/DAY FOR 5 DAYS
     Route: 042
     Dates: start: 20220810, end: 20220810
  2. VEKLURY [Suspect]
     Active Substance: REMDESIVIR
     Dosage: 100 MG, TID
     Route: 042
     Dates: start: 20220811, end: 20220814
  3. FUROSEMIDE SODIUM [Concomitant]
     Active Substance: FUROSEMIDE SODIUM
     Route: 065
  4. MEROPENEM [Concomitant]
     Active Substance: MEROPENEM
  5. DEXAMETHASONE [Concomitant]
     Active Substance: DEXAMETHASONE
  6. CARVEDILOL [Concomitant]
     Active Substance: CARVEDILOL
  7. FLAVOXATO [FLAVOXATE] [Concomitant]

REACTIONS (1)
  - Drug ineffective [Recovering/Resolving]

NARRATIVE: CASE EVENT DATE: 20220810
